FAERS Safety Report 6706395-8 (Version None)
Quarter: 2010Q2

REPORT INFORMATION
  Report Type: 
  Country: None (occurrence: None)
  Receive Date: 20100503
  Receipt Date: 20100421
  Transmission Date: 20101027
  Serious: Yes (Other)
  Sender: FDA-Public Use
  Company Number: PHHY2010BE25054

PATIENT
  Sex: Male

DRUGS (17)
  1. MIACALCIN [Suspect]
     Indication: CALCIUM DEFICIENCY
     Dosage: 50 IU DAILY
     Route: 058
     Dates: start: 20100330
  2. MIACALCIN [Suspect]
     Dosage: 100 IU DAILY
     Route: 058
  3. LUCRIN TRI DEPOT [Concomitant]
     Indication: PROSTATE CANCER
     Dosage: 11.25 MG
     Dates: start: 20070101
  4. TAMSULOSIN SANDOZ [Concomitant]
     Dosage: 0.4 MG
     Dates: start: 20070101
  5. ALLOPURINOL [Concomitant]
     Dosage: 100
  6. TRITACE [Concomitant]
     Dosage: 5 MG DAILY
  7. MOTIFENE [Concomitant]
     Indication: POLYNEUROPATHY
     Dosage: 75
     Dates: start: 20080101
  8. TRAMADOL HCL [Concomitant]
     Indication: POLYNEUROPATHY
     Dosage: 50
  9. TRAMADOL HCL [Concomitant]
     Dosage: 100
  10. LASIX [Concomitant]
     Dosage: 2X40 MG WEEKLY
  11. ASAFLOW [Concomitant]
     Dosage: 80 MG DAILY
  12. INSULIN MIXTARD 30 [Concomitant]
     Indication: TYPE 1 DIABETES MELLITUS
     Dosage: 22 IU
     Dates: start: 20100201
  13. INSULIN MIXTARD 30 [Concomitant]
     Dosage: 12 IU
     Dates: start: 20100201
  14. GLUCOPHAGE [Concomitant]
     Dosage: 850 MG, QD
  15. GLUCOPHAGE [Concomitant]
     Dosage: 850 MG, BID
  16. CLEXANE [Concomitant]
     Dosage: 80
  17. CACIT VITAMINE D3 [Concomitant]
     Dosage: UNK

REACTIONS (3)
  - DIARRHOEA [None]
  - HYPOGLYCAEMIA [None]
  - WEIGHT DECREASED [None]
